FAERS Safety Report 8458246-1 (Version None)
Quarter: 2012Q2

REPORT INFORMATION
  Report Type: 
  Country: None (occurrence: None)
  Receive Date: 20120323
  Receipt Date: 20111021
  Transmission Date: 20120825
  Serious: Yes (Other)
  Sender: FDA-Public Use
  Company Number: 163-21880-11102700

PATIENT
  Age: 87 Year
  Sex: Female

DRUGS (2)
  1. REVLIMID [Suspect]
     Indication: MULTIPLE MYELOMA
     Dosage: 20;15 MG, 2 IN 1 D, PO
     Route: 048
     Dates: start: 20110101, end: 20110301
  2. REVLIMID [Suspect]
     Indication: MULTIPLE MYELOMA
     Dosage: 20;15 MG, 2 IN 1 D, PO
     Route: 048
     Dates: start: 20110301, end: 20111020

REACTIONS (2)
  - MULTIPLE MYELOMA [None]
  - NO THERAPEUTIC RESPONSE [None]
